FAERS Safety Report 5615084-2 (Version None)
Quarter: 2008Q1

REPORT INFORMATION
  Report Type: 
  Country: None (occurrence: None)
  Receive Date: 20080206
  Receipt Date: 20070125
  Transmission Date: 20080703
  Serious: No
  Sender: FDA-Public Use
  Company Number: A0637026A

PATIENT
  Age: 64 Year
  Sex: Male

DRUGS (8)
  1. ARIXTRA [Suspect]
     Indication: PULMONARY EMBOLISM
     Dosage: 10MG PER DAY
     Route: 042
  2. WELLBUTRIN XL [Concomitant]
  3. FOLTX [Concomitant]
  4. DIOVAN [Concomitant]
  5. VYTORIN [Concomitant]
  6. METOPROLOL TARTRATE [Concomitant]
  7. FLOMAX [Concomitant]
  8. TRICOR [Concomitant]

REACTIONS (1)
  - ERECTILE DYSFUNCTION [None]
